FAERS Safety Report 7414463-0 (Version None)
Quarter: 2011Q2

REPORT INFORMATION
  Report Type: 
  Country: None (occurrence: None)
  Receive Date: 20110414
  Receipt Date: 20110406
  Transmission Date: 20111010
  Serious: Yes (Hospitalization)
  Sender: FDA-Public Use
  Company Number: US-US-EMD SERONO, INC.-7012942

PATIENT
  Sex: Female

DRUGS (1)
  1. REBIF [Suspect]
     Indication: PRODUCT USED FOR UNKNOWN INDICATION
     Route: 058
     Dates: start: 20020630, end: 20100801

REACTIONS (5)
  - INJECTION SITE INDURATION [None]
  - INJECTION SITE HAEMATOMA [None]
  - SCOLIOSIS [None]
  - PYREXIA [None]
  - INFLUENZA LIKE ILLNESS [None]
